FAERS Safety Report 9663614 (Version 1)
Quarter: 2013Q4

REPORT INFORMATION
  Report Type: Spontaneous
  Country: JP (occurrence: JP)
  Receive Date: 20131101
  Receipt Date: 20131101
  Transmission Date: 20140711
  Serious: Yes (Hospitalization)
  Sender: FDA-Public Use
  Company Number: JP-ROCHE-1295301

PATIENT
  Age: 68 Year
  Sex: Female

DRUGS (6)
  1. RIVOTRIL [Suspect]
     Indication: BIPOLAR DISORDER
     Dosage: DOSAGE IS UNCERTAIN
     Route: 048
  2. LITHIUM CARBONATE [Concomitant]
     Dosage: DOSAGE IS UNCERTAIN
     Route: 065
  3. AMOXAPINE [Concomitant]
     Dosage: DOSAGE IS UNCERTAIN
     Route: 065
  4. CLOMIPRAMINE HYDROCHLORIDE [Concomitant]
     Dosage: DOSAGE IS UNCERTAIN
     Route: 065
  5. AMITRIPTYLINE [Concomitant]
     Dosage: DOSAGE IS UNCERTAIN
     Route: 065
  6. MILNACIPRAN HYDROCHLORIDE [Concomitant]
     Dosage: DOSAGE IS UNCERTAIN
     Route: 065

REACTIONS (1)
  - Status epilepticus [Unknown]
